FAERS Safety Report 23717373 (Version 1)
Quarter: 2024Q2

REPORT INFORMATION
  Report Type: Spontaneous
  Country: US (occurrence: US)
  Receive Date: 20240408
  Receipt Date: 20240408
  Transmission Date: 20240715
  Serious: Yes (Other)
  Sender: FDA-Public Use
  Company Number: US-OPELLA-2024OHG011054

PATIENT
  Sex: Female

DRUGS (1)
  1. GOLD BOND MEDICATED ORIGINAL STRENGTH BODY [Suspect]
     Active Substance: MENTHOL
     Indication: Product used for unknown indication

REACTIONS (7)
  - Epithelioid mesothelioma [Unknown]
  - Deformity [Unknown]
  - Exposure to chemical pollution [Unknown]
  - Injury [Unknown]
  - Emotional distress [Unknown]
  - Pain [Unknown]
  - Anxiety [Unknown]

NARRATIVE: CASE EVENT DATE: 19710701
